FAERS Safety Report 9652832 (Version 1)
Quarter: 2013Q4

REPORT INFORMATION
  Report Type: Spontaneous
  Country: US (occurrence: US)
  Receive Date: 20131029
  Receipt Date: 20131029
  Transmission Date: 20140711
  Serious: Yes (Other)
  Sender: FDA-Public Use
  Company Number: US-ROXANE LABORATORIES, INC.-2013-RO-01734RO

PATIENT
  Age: 54 Year
  Sex: Male

DRUGS (2)
  1. LITHIUM CARBONATE [Suspect]
  2. OMNIPAQUE [Suspect]
     Indication: SCAN WITH CONTRAST

REACTIONS (2)
  - Thyrotoxic crisis [Recovered/Resolved]
  - Pneumonia aspiration [Unknown]
